FAERS Safety Report 6831034-5 (Version None)
Quarter: 2010Q3

REPORT INFORMATION
  Report Type: 
  Country: None (occurrence: None)
  Receive Date: 20100712
  Receipt Date: 20100702
  Transmission Date: 20110219
  Serious: Yes (Other)
  Sender: FDA-Public Use
  Company Number: GB-JNJCH-2010015798

PATIENT
  Sex: Male

DRUGS (1)
  1. LISTERINE [Suspect]
     Indication: PRODUCT USED FOR UNKNOWN INDICATION
     Dosage: TEXT:UNKNOWN
     Route: 048

REACTIONS (2)
  - CHEMICAL INJURY [None]
  - WRONG TECHNIQUE IN DRUG USAGE PROCESS [None]
